FAERS Safety Report 8607263-7 (Version None)
Quarter: 2012Q3

REPORT INFORMATION
  Report Type: 
  Country: None (occurrence: None)
  Receive Date: 20120821
  Receipt Date: 20120814
  Transmission Date: 20120928
  Serious: Yes (Other)
  Sender: FDA-Public Use
  Company Number: CO-AMGEN-COLSP2012044522

PATIENT
  Age: 73 Year
  Sex: Female

DRUGS (4)
  1. ENBREL [Suspect]
     Indication: RHEUMATOID ARTHRITIS
     Dosage: 50 MG, WEEKLY
     Route: 058
     Dates: start: 20040101, end: 20120718
  2. NIMODIPINE [Concomitant]
     Dosage: 5 MG, UNK
     Route: 048
  3. TIROXINA [Concomitant]
     Indication: HYPOTHYROIDISM
     Dosage: HALF TABLET OF 50MG
     Route: 048
     Dates: start: 20110101
  4. METHOTREXATE [Concomitant]
     Indication: RHEUMATOID ARTHRITIS
     Dosage: MONDAY AND TUESDAY
     Route: 048

REACTIONS (6)
  - MONOPLEGIA [None]
  - CONTUSION [None]
  - GAIT DISTURBANCE [None]
  - VOMITING [None]
  - RASH [None]
  - SPEECH DISORDER [None]
